FAERS Safety Report 21677992 (Version 1)
Quarter: 2022Q4

REPORT INFORMATION
  Report Type: Report from Study
  Country: US (occurrence: US)
  Receive Date: 20221203
  Receipt Date: 20221203
  Transmission Date: 20230112
  Serious: No
  Sender: FDA-Public Use
  Company Number: US-ABBVIE-4175227

PATIENT
  Sex: Female
  Weight: 88.45 kg

DRUGS (9)
  1. HUMIRA [Suspect]
     Active Substance: ADALIMUMAB
     Indication: Autoimmune disorder
     Dosage: FORM STRENGTH 40 MILLIGRAM
     Route: 058
     Dates: start: 202204, end: 20220907
  2. HUMIRA [Suspect]
     Active Substance: ADALIMUMAB
     Indication: Rheumatoid arthritis
     Dosage: FORM STRENGTH 40 MILLIGRAM
     Route: 058
     Dates: start: 20220921
  3. HUMIRA [Suspect]
     Active Substance: ADALIMUMAB
     Indication: Psoriasis
  4. HUMIRA [Suspect]
     Active Substance: ADALIMUMAB
     Indication: Systemic lupus erythematosus
  5. HUMIRA [Suspect]
     Active Substance: ADALIMUMAB
     Indication: Osteoarthritis
  6. HUMIRA [Suspect]
     Active Substance: ADALIMUMAB
     Indication: Psoriatic arthropathy
  7. PFIZER-BIONTECH COVID-19 VACCINE [Concomitant]
     Active Substance: TOZINAMERAN
     Indication: COVID-19 immunisation
     Dosage: ONE IN ONCE, FIRST DOSE
     Route: 030
     Dates: start: 202107, end: 202107
  8. PFIZER-BIONTECH COVID-19 VACCINE [Concomitant]
     Active Substance: TOZINAMERAN
     Indication: COVID-19 immunisation
     Dosage: ONE IN ONCE, SECOND DOSE
     Route: 030
     Dates: start: 202108, end: 202108
  9. MOBIC [Concomitant]
     Active Substance: MELOXICAM
     Indication: Product used for unknown indication

REACTIONS (8)
  - Condition aggravated [Not Recovered/Not Resolved]
  - Spinal disorder [Not Recovered/Not Resolved]
  - Fatigue [Not Recovered/Not Resolved]
  - Arthralgia [Not Recovered/Not Resolved]
  - Drug ineffective [Unknown]
  - Off label use [Unknown]
  - Psoriatic arthropathy [Unknown]
  - Psoriasis [Unknown]

NARRATIVE: CASE EVENT DATE: 20220101
